FAERS Safety Report 14732331 (Version 2)
Quarter: 2018Q3

REPORT INFORMATION
  Report Type: Spontaneous
  Country: KR (occurrence: KR)
  Receive Date: 20180409
  Receipt Date: 20180821
  Transmission Date: 20181010
  Serious: Yes (Hospitalization, Other)
  Sender: FDA-Public Use
  Company Number: KR-CONCORDIA PHARMACEUTICALS INC.-E2B_00010953

PATIENT
  Age: 22 Year
  Sex: Male

DRUGS (7)
  1. PREDNISOLONE. [Suspect]
     Active Substance: PREDNISOLONE
     Indication: MELAS SYNDROME
     Dosage: MAINTENANCE DOSE
  2. DEXAMETHASONE. [Suspect]
     Active Substance: DEXAMETHASONE
     Indication: MELAS SYNDROME
     Route: 042
  3. L?CARNITINE [Concomitant]
     Active Substance: LEVOCARNITINE
     Indication: MELAS SYNDROME
  4. L?ARGININE [Concomitant]
     Active Substance: ARGININE
     Indication: MELAS SYNDROME
  5. VITAMIN B [Concomitant]
     Active Substance: VITAMIN B
     Indication: MELAS SYNDROME
  6. PREDNISOLONE. [Suspect]
     Active Substance: PREDNISOLONE
     Dosage: ON TAPERED DOSE
  7. COENZYME Q [Concomitant]
     Indication: MELAS SYNDROME

REACTIONS (1)
  - Osteonecrosis [Unknown]
